FAERS Safety Report 6660160-9 (Version None)
Quarter: 2010Q1

REPORT INFORMATION
  Report Type: 
  Country: None (occurrence: None)
  Receive Date: 20100331
  Receipt Date: 20100311
  Transmission Date: 20100710
  Serious: No
  Sender: FDA-Public Use
  Company Number: 2009BI018715

PATIENT
  Age: 40 Year
  Sex: Male

DRUGS (2)
  1. TYSABRI [Suspect]
     Indication: MULTIPLE SCLEROSIS
     Route: 042
     Dates: start: 20090121, end: 20090601
  2. TYSABRI [Suspect]
     Route: 042
     Dates: start: 20090801

REACTIONS (4)
  - FATIGUE [None]
  - HERNIA REPAIR [None]
  - MULTIPLE SCLEROSIS [None]
  - NASOPHARYNGITIS [None]
